FAERS Safety Report 7985157-8 (Version None)
Quarter: 2011Q4

REPORT INFORMATION
  Report Type: 
  Country: None (occurrence: None)
  Receive Date: 20111216
  Receipt Date: 20111213
  Transmission Date: 20120403
  Serious: Yes (Life-Threatening, Hospitalization, Other)
  Sender: FDA-Public Use
  Company Number: PHHY2010DE87132

PATIENT
  Sex: Male
  Weight: 85 kg

DRUGS (21)
  1. RASILEZ [Suspect]
     Indication: HYPERTENSION
     Dosage: 150 MG
     Route: 048
     Dates: start: 20081120
  2. RASILEZ [Suspect]
     Dosage: 300 MG, QD
     Route: 048
     Dates: start: 20091210
  3. CARVEDILOL [Concomitant]
     Indication: HYPERTENSION
     Dosage: 25 MG
     Route: 048
     Dates: start: 20070207
  4. SPIRO COMP FORTE [Concomitant]
     Indication: CARDIOMYOPATHY
     Route: 048
     Dates: start: 20060101
  5. STATINE [Concomitant]
     Dosage: UNK UKN, UNK
  6. DIGITOXIN TAB [Concomitant]
     Indication: CARDIOMYOPATHY
     Dosage: 0.07 G
     Route: 048
     Dates: start: 20070111
  7. LERCANIDIPINE [Concomitant]
     Indication: HYPERTENSION
     Dosage: 20 MG, QD
     Route: 048
     Dates: start: 20101201
  8. OLMESARTAN MEDOXOMIL [Concomitant]
     Indication: HYPERTENSION
     Dosage: 40 MG, QD
     Route: 048
     Dates: start: 20070412
  9. EFFIENT [Concomitant]
     Indication: CORONARY ARTERY DISEASE
     Dosage: 10 MG, QD
     Route: 048
     Dates: start: 20110512
  10. ISOSORBIDE DINITRATE [Concomitant]
     Indication: CARDIOMYOPATHY
     Dosage: 60 MG
     Route: 048
     Dates: start: 20081201
  11. LASIX [Concomitant]
     Indication: CARDIAC FAILURE
     Dosage: 80 MG, QD
     Route: 048
     Dates: start: 20101122
  12. OLMESARTAN MEDOXOMIL [Concomitant]
     Indication: HYPERTENSION
     Dosage: 40 MG
     Route: 048
     Dates: start: 20061101
  13. MOXONIDINE [Concomitant]
     Indication: HYPERTENSION
     Dosage: 0.6 MG, QD
     Route: 048
     Dates: start: 20110314
  14. CALCIUM ANTAGONIST [Concomitant]
     Dosage: UNK UKN, UNK
  15. VASODILATATOR [Concomitant]
     Dosage: UNK UKN, UNK
  16. ANTIDEPRESSANTS [Concomitant]
  17. ALLOPURINOL [Concomitant]
     Indication: HYPERURICAEMIA
     Dosage: 150 MG
     Route: 048
     Dates: start: 20070601
  18. ACETYLSALICYLIC ACID SRT [Concomitant]
     Indication: CORONARY ARTERY DISEASE
     Dosage: 100 MG
     Route: 048
     Dates: start: 20100914
  19. LEVEMIR [Concomitant]
     Indication: DIABETES MELLITUS
     Dosage: 24 IU, UNK
     Route: 058
     Dates: start: 20100701
  20. CARVEDILOL [Concomitant]
     Indication: CORONARY ARTERY DISEASE
  21. NOVORAPID [Concomitant]
     Indication: DIABETES MELLITUS
     Dosage: UNK UKN, UNK
     Route: 058
     Dates: start: 20080801

REACTIONS (3)
  - PNEUMONIA [None]
  - BLOOD PRESSURE DECREASED [None]
  - ACUTE MYOCARDIAL INFARCTION [None]
